FAERS Safety Report 14406906 (Version 1)
Quarter: 2018Q1

REPORT INFORMATION
  Report Type: Spontaneous
  Country: US (occurrence: US)
  Receive Date: 20180116
  Receipt Date: 20180116
  Transmission Date: 20180509
  Serious: Yes (Life-Threatening, Hospitalization)
  Sender: FDA-Public Use
  Company Number: None

PATIENT
  Age: 72 Year
  Sex: Male

DRUGS (1)
  1. WARFARIN [Suspect]
     Active Substance: WARFARIN
     Indication: ATRIAL FIBRILLATION
     Dates: start: 20160520, end: 20170618

REACTIONS (4)
  - Haemorrhage intracranial [None]
  - Cerebrovascular accident [None]
  - Therapy cessation [None]
  - Transient ischaemic attack [None]

NARRATIVE: CASE EVENT DATE: 20170621
